FAERS Safety Report 20954142 (Version 4)
Quarter: 2023Q1

REPORT INFORMATION
  Report Type: Report from Study
  Country: US (occurrence: US)
  Receive Date: 20220614
  Receipt Date: 20230302
  Transmission Date: 20230417
  Serious: No
  Sender: FDA-Public Use
  Company Number: US-ACADIA PHARMACEUTICALS INC.-ACA-2022-PIM-001804

PATIENT
  Age: 85 Year
  Sex: Female

DRUGS (17)
  1. NUPLAZID [Suspect]
     Active Substance: PIMAVANSERIN TARTRATE
     Indication: Parkinson^s disease psychosis
     Dosage: 34 MILLIGRAM, QD
     Route: 048
     Dates: start: 202205
  2. NUPLAZID [Suspect]
     Active Substance: PIMAVANSERIN TARTRATE
     Indication: Hallucination
     Dosage: 34 MILLIGRAM, QD
     Route: 048
     Dates: start: 20220610
  3. NUPLAZID [Suspect]
     Active Substance: PIMAVANSERIN TARTRATE
     Indication: Delusion
  4. NUPLAZID [Suspect]
     Active Substance: PIMAVANSERIN TARTRATE
     Indication: Parkinson^s disease
  5. VITAMIN D3 [Concomitant]
     Active Substance: CHOLECALCIFEROL
  6. HUMALOG [Concomitant]
     Active Substance: INSULIN LISPRO
  7. LANTUS [Concomitant]
     Active Substance: INSULIN GLARGINE
  8. VASCEPA [Concomitant]
     Active Substance: ICOSAPENT ETHYL
  9. TRAZODONE [Concomitant]
     Active Substance: TRAZODONE HYDROCHLORIDE
  10. MONTELUKAST [Concomitant]
     Active Substance: MONTELUKAST SODIUM
  11. METOPROLOL [Concomitant]
     Active Substance: METOPROLOL
  12. LISINOPRIL [Concomitant]
     Active Substance: LISINOPRIL
  13. ISOSORBIDE [Concomitant]
     Active Substance: ISOSORBIDE
  14. GABAPENTIN [Concomitant]
     Active Substance: GABAPENTIN
  15. CLONIDINE [Concomitant]
     Active Substance: CLONIDINE
  16. ATORVASTATIN [Concomitant]
     Active Substance: ATORVASTATIN
  17. ASPIRIN [Concomitant]
     Active Substance: ASPIRIN

REACTIONS (11)
  - Hypersomnia [Unknown]
  - Fatigue [Unknown]
  - Nonspecific reaction [Unknown]
  - Loss of personal independence in daily activities [Unknown]
  - Ataxia [Unknown]
  - Gait disturbance [Unknown]
  - Confusional state [Unknown]
  - Hallucination [Unknown]
  - Confusional state [Unknown]
  - Constipation [Unknown]
  - Hallucination [Unknown]

NARRATIVE: CASE EVENT DATE: 20220501
